FAERS Safety Report 8829979 (Version 1)
Quarter: 2012Q4

REPORT INFORMATION
  Report Type: 
  Country: DE (occurrence: DE)
  Receive Date: 20121008
  Receipt Date: 20121008
  Transmission Date: 20130627
  Serious: Yes (Life-Threatening)
  Sender: FDA-Public Use
  Company Number: DE-ROCHE-GNE282227

PATIENT
  Age: 79 Year
  Sex: Female
  Weight: 75.08 kg

DRUGS (1)
  1. RANIBIZUMAB [Suspect]
     Indication: AGE-RELATED MACULAR DEGENERATION
     Dosage: UNK
     Route: 050
     Dates: start: 20081001, end: 20090817

REACTIONS (1)
  - Cerebrovascular accident [Recovered/Resolved]
